FAERS Safety Report 24589983 (Version 1)
Quarter: 2024Q4

REPORT INFORMATION
  Report Type: Report from Study
  Country: US (occurrence: US)
  Receive Date: 20241107
  Receipt Date: 20241107
  Transmission Date: 20250115
  Serious: Yes (Other)
  Sender: ROCHE
  Company Number: US-ROCHE-10000126299

PATIENT

DRUGS (1)
  1. TENECTEPLASE [Suspect]
     Active Substance: TENECTEPLASE
     Indication: Retinal artery occlusion
     Route: 042

REACTIONS (3)
  - Haemorrhage intracranial [Unknown]
  - Cerebral haemorrhage [Unknown]
  - Quadrantanopia [Not Recovered/Not Resolved]
